FAERS Safety Report 4524479-X (Version None)
Quarter: 2004Q4

REPORT INFORMATION
  Report Type: 
  Country: None (occurrence: None)
  Receive Date: 20041117
  Receipt Date: 20031010
  Transmission Date: 20050328
  Serious: Yes (Hospitalization)
  Sender: FDA-Public Use
  Company Number: US-JNJFOC-20030601798

PATIENT
  Age: 80 Year
  Sex: Female

DRUGS (1)
  1. LEVAQUIN [Suspect]

REACTIONS (3)
  - ARRHYTHMIA [None]
  - BLOOD CREATINE INCREASED [None]
  - CARDIAC ARREST [None]
